FAERS Safety Report 4713427-5 (Version None)
Quarter: 2005Q3

REPORT INFORMATION
  Report Type: 
  Country: None (occurrence: None)
  Receive Date: 20050713
  Receipt Date: 20050704
  Transmission Date: 20060218
  Serious: Yes (Hospitalization)
  Sender: FDA-Public Use
  Company Number: BR-ROCHE-409777

PATIENT
  Age: 30 Year
  Sex: Female

DRUGS (5)
  1. ROACUTAN [Suspect]
     Indication: ACNE
     Route: 048
     Dates: start: 20041015
  2. LEVOFLOXACIN [Suspect]
     Indication: SINUSITIS
     Route: 065
     Dates: start: 20050615, end: 20050615
  3. DIPYRONE INJ [Suspect]
     Indication: SINUSITIS
     Route: 065
     Dates: start: 20050615, end: 20050615
  4. PARACETAMOL [Suspect]
     Indication: SINUSITIS
     Route: 065
     Dates: start: 20050615, end: 20050615
  5. ANTI-INFLAMMATORY DRUG [Suspect]
     Indication: SINUSITIS
     Route: 065
     Dates: start: 20050615, end: 20050615

REACTIONS (4)
  - ERYTHEMA MULTIFORME [None]
  - MALAISE [None]
  - MONARTHRITIS [None]
  - SINUSITIS [None]
